FAERS Safety Report 6773919-4 (Version None)
Quarter: 2010Q2

REPORT INFORMATION
  Report Type: 
  Country: None (occurrence: None)
  Receive Date: 20100615
  Receipt Date: 20100615
  Transmission Date: 20101027
  Serious: Yes (Life-Threatening, Disabling, Other)
  Sender: FDA-Public Use
  Company Number: None

PATIENT
  Sex: Female
  Weight: 49.4421 kg

DRUGS (2)
  1. FOSAMAX [Suspect]
     Indication: BONE DISORDER
     Dosage: 35 MG WEEKLY
     Dates: start: 20050101, end: 20100101
  2. ACTONEL [Suspect]
     Indication: BONE DISORDER
     Dates: start: 19970101, end: 20050101

REACTIONS (1)
  - OSTEONECROSIS OF JAW [None]
